FAERS Safety Report 15771268 (Version 1)
Quarter: 2018Q4

REPORT INFORMATION
  Report Type: Spontaneous
  Country: US (occurrence: US)
  Receive Date: 20181228
  Receipt Date: 20181228
  Transmission Date: 20190205
  Serious: No
  Sender: FDA-Public Use
  Company Number: US-INDIVIOR LIMITED-INDV-115066-2018

PATIENT
  Sex: Male

DRUGS (3)
  1. SUBUTEX [Suspect]
     Active Substance: BUPRENORPHINE HYDROCHLORIDE
     Dosage: 32 MG, DAILY
     Route: 065
     Dates: start: 2018
  2. SUBUTEX [Suspect]
     Active Substance: BUPRENORPHINE HYDROCHLORIDE
     Indication: DRUG DEPENDENCE
     Dosage: 8 MG, DAILY
     Route: 065
     Dates: start: 2018, end: 2018
  3. SUBLOCADE [Suspect]
     Active Substance: BUPRENORPHINE
     Indication: DRUG USE DISORDER
     Dosage: 300 MG, QMO
     Route: 065
     Dates: start: 2018

REACTIONS (3)
  - Prescribed overdose [Unknown]
  - Drug dependence [Unknown]
  - Drug withdrawal syndrome [Unknown]

NARRATIVE: CASE EVENT DATE: 2018
